FAERS Safety Report 7901205-5 (Version None)
Quarter: 2011Q4

REPORT INFORMATION
  Report Type: 
  Country: None (occurrence: None)
  Receive Date: 20111108
  Receipt Date: 20111026
  Transmission Date: 20120403
  Serious: Yes (Life-Threatening, Hospitalization, Other)
  Sender: FDA-Public Use
  Company Number: PHEH2011US07910

PATIENT
  Sex: Female

DRUGS (2)
  1. FUROSEMIDE [Suspect]
     Dosage: 120 MG, QD
  2. DIOVAN [Suspect]
     Dosage: 80 MG, BID

REACTIONS (28)
  - MYELOPATHY [None]
  - SWELLING FACE [None]
  - OEDEMA PERIPHERAL [None]
  - INTERVERTEBRAL DISC PROTRUSION [None]
  - EXTRASYSTOLES [None]
  - MEMORY IMPAIRMENT [None]
  - APHAGIA [None]
  - DYSPEPSIA [None]
  - HEAD DISCOMFORT [None]
  - SPINAL DISORDER [None]
  - ASPHYXIA [None]
  - ROAD TRAFFIC ACCIDENT [None]
  - CARDIOMEGALY [None]
  - SCAR [None]
  - DECREASED APPETITE [None]
  - DIZZINESS [None]
  - FEELING ABNORMAL [None]
  - PULMONARY OEDEMA [None]
  - EJECTION FRACTION DECREASED [None]
  - FLUID RETENTION [None]
  - DRUG DEPENDENCE [None]
  - VOMITING [None]
  - BACK DISORDER [None]
  - ABDOMINAL DISCOMFORT [None]
  - DYSPNOEA [None]
  - CARDIAC FAILURE [None]
  - POOR PERIPHERAL CIRCULATION [None]
  - MUSCULOSKELETAL DISCOMFORT [None]
